FAERS Safety Report 4840796-8 (Version None)
Quarter: 2005Q4

REPORT INFORMATION
  Report Type: 
  Country: None (occurrence: None)
  Receive Date: 20051130
  Receipt Date: 20041216
  Transmission Date: 20060501
  Serious: No
  Sender: FDA-Public Use
  Company Number: US-BRISTOL-MYERS SQUIBB COMPANY-12797643

PATIENT
  Age: 75 Year
  Sex: Female
  Weight: 71 kg

DRUGS (5)
  1. AVALIDE [Suspect]
     Indication: HYPERTENSION
     Route: 048
     Dates: start: 20041016
  2. CALCIUM GLUCONATE [Concomitant]
  3. PREMARIN [Concomitant]
  4. VITAMINS [Concomitant]
  5. ZOCOR [Concomitant]

REACTIONS (1)
  - ARRHYTHMIA [None]
